FAERS Safety Report 15796120 (Version 1)
Quarter: 2019Q1

REPORT INFORMATION
  Report Type: Report from Study
  Country: US (occurrence: US)
  Receive Date: 20190108
  Receipt Date: 20190108
  Transmission Date: 20190417
  Serious: Yes (Other)
  Sender: FDA-Public Use
  Company Number: US-AUROBINDO-AUR-APL-2019-000143

PATIENT

DRUGS (6)
  1. DOXORUBICIN [Suspect]
     Active Substance: DOXORUBICIN
     Indication: NON-HODGKIN^S LYMPHOMA
     Dosage: INFUSIONAL DOSE  ADJUSTED, (CENTRAL VENOUS CATHETER )
     Route: 058
  2. VINCRISTINE [Suspect]
     Active Substance: VINCRISTINE
     Indication: NON-HODGKIN^S LYMPHOMA
     Dosage: INFUSIONAL DOSE  ADJUSTED, (CENTRAL VENOUS CATHETER )
     Route: 058
  3. PREDNISONE. [Suspect]
     Active Substance: PREDNISONE
     Indication: NON-HODGKIN^S LYMPHOMA
     Dosage: INFUSIONAL DOSE  ADJUSTED, (CENTRAL VENOUS CATHETER )
     Route: 058
  4. RITUXIMAB. [Suspect]
     Active Substance: RITUXIMAB
     Indication: NON-HODGKIN^S LYMPHOMA
     Dosage: INFUSIONAL DOSE  ADJUSTED, (CENTRAL VENOUS CATHETER) (SUBCUTANEOUS PORT)
     Route: 058
  5. CYCLOPHOSPHAMIDE. [Suspect]
     Active Substance: CYCLOPHOSPHAMIDE
     Indication: NON-HODGKIN^S LYMPHOMA
     Dosage: INFUSIONAL DOSE  ADJUSTED, (CENTRAL VENOUS CATHETER )
     Route: 058
  6. ETOPOSIDE. [Suspect]
     Active Substance: ETOPOSIDE
     Indication: PRODUCT USED FOR UNKNOWN INDICATION
     Dosage: INFUSIONAL DOSE ADJUSTED
     Route: 058

REACTIONS (4)
  - Bacteraemia [Unknown]
  - Embolism venous [Unknown]
  - Deep vein thrombosis [Unknown]
  - Extravasation [Unknown]
